FAERS Safety Report 15595128 (Version 1)
Quarter: 2018Q4

REPORT INFORMATION
  Report Type: Spontaneous
  Country: FR (occurrence: FR)
  Receive Date: 20181107
  Receipt Date: 20181107
  Transmission Date: 20190205
  Serious: Yes (Life-Threatening, Hospitalization, Other)
  Sender: FDA-Public Use
  Company Number: FR-AMGEN-FRASP2018156481

PATIENT
  Age: 36 Year
  Sex: Male
  Weight: 75 kg

DRUGS (2)
  1. ENBREL [Suspect]
     Active Substance: ETANERCEPT
     Dosage: 50 MG, EVERY THREE WEEKS
     Route: 058
     Dates: end: 20170309
  2. ENBREL [Suspect]
     Active Substance: ETANERCEPT
     Indication: PRODUCT USED FOR UNKNOWN INDICATION
     Dosage: 50 MG, WEEKLY
     Route: 058
     Dates: start: 20130501

REACTIONS (2)
  - Metastases to lymph nodes [Recovered/Resolved with Sequelae]
  - Testicular neoplasm [Recovered/Resolved with Sequelae]

NARRATIVE: CASE EVENT DATE: 20170309
